FAERS Safety Report 5751736-1 (Version None)
Quarter: 2008Q2

REPORT INFORMATION
  Report Type: 
  Country: None (occurrence: None)
  Receive Date: 20080529
  Receipt Date: 20080519
  Transmission Date: 20081010
  Serious: Yes (Life-Threatening)
  Sender: FDA-Public Use
  Company Number: ES-TEVA-170418ISR

PATIENT
  Sex: Male
  Weight: 11 kg

DRUGS (5)
  1. FOLINIC ACID [Suspect]
     Route: 042
  2. METHOTREXATE [Concomitant]
  3. FUROSEMIDE [Concomitant]
     Route: 042
  4. ONDANSETRON [Concomitant]
     Route: 042
  5. ALKALINIZING SOLUTION [Concomitant]

REACTIONS (1)
  - CARDIO-RESPIRATORY ARREST [None]
